FAERS Safety Report 9507176 (Version 1)
Quarter: 2013Q1

REPORT INFORMATION
  Report Type: Spontaneous
  Country: US (occurrence: None)
  Receive Date: 20130305
  Receipt Date: 20130305
  Transmission Date: 20140127
  Serious: Yes (Other)
  Sender: FDA-Public Use
  Company Number: 163-21880-12050833

PATIENT
  Sex: 0

DRUGS (1)
  1. REVLIMID [Suspect]
     Dosage: 10 MG, 21 IN 28 D, PO
     Dates: start: 20120326, end: 201205

REACTIONS (3)
  - Neutrophil count decreased [None]
  - Rash erythematous [None]
  - Rash [None]
